FAERS Safety Report 19141875 (Version 3)
Quarter: 2021Q2

REPORT INFORMATION
  Report Type: Report from Study
  Country: BR (occurrence: BR)
  Receive Date: 20210415
  Receipt Date: 20210519
  Transmission Date: 20210717
  Serious: Yes (Other)
  Sender: FDA-Public Use
  Company Number: BR-TAKEDA-BR201928972

PATIENT
  Sex: Male
  Weight: 12.3 kg

DRUGS (2)
  1. HEMO?8R [Suspect]
     Active Substance: ANTIHEMOPHILIC FACTOR, HUMAN RECOMBINANT
     Indication: FACTOR VIII DEFICIENCY
     Dosage: UNK
     Route: 050
     Dates: start: 20190723, end: 202012
  2. HEMO?8R [Suspect]
     Active Substance: ANTIHEMOPHILIC FACTOR, HUMAN RECOMBINANT
     Dosage: 750 INTERNATIONAL UNIT, 3/WEEK
     Route: 042
     Dates: start: 20200118

REACTIONS (8)
  - Factor VII inhibition [Unknown]
  - Weight increased [Unknown]
  - Traumatic haematoma [Recovered/Resolved]
  - Haematoma [Unknown]
  - Fall [Unknown]
  - Drug ineffective [Unknown]
  - Lip haemorrhage [Unknown]
  - Unevaluable event [Unknown]
